FAERS Safety Report 22216036 (Version 1)
Quarter: 2023Q2

REPORT INFORMATION
  Report Type: Spontaneous
  Country: US (occurrence: US)
  Receive Date: 20230417
  Receipt Date: 20230417
  Transmission Date: 20230722
  Serious: Yes (Death, Other)
  Sender: FDA-Public Use
  Company Number: US-BRISTOL-MYERS SQUIBB COMPANY-2023-053443

PATIENT
  Age: 70 Year
  Sex: Female

DRUGS (1)
  1. REVLIMID [Suspect]
     Active Substance: LENALIDOMIDE
     Indication: Plasma cell myeloma
     Dosage: DOSE : UNKNOWN;     FREQ : 1 DAILY X 21 DAYS, 7 DAYS OFF
     Route: 048
     Dates: start: 20220225, end: 20230408

REACTIONS (1)
  - Death [Fatal]

NARRATIVE: CASE EVENT DATE: 20230408
